FAERS Safety Report 14448079 (Version 1)
Quarter: 2018Q1

REPORT INFORMATION
  Report Type: Spontaneous
  Country: CA (occurrence: CA)
  Receive Date: 20180126
  Receipt Date: 20180126
  Transmission Date: 20180509
  Serious: Yes (Hospitalization, Other)
  Sender: FDA-Public Use
  Company Number: PHHY2018CA009204

PATIENT
  Age: 67 Year
  Sex: Male
  Weight: 118 kg

DRUGS (11)
  1. APO PREGABALIN [Suspect]
     Active Substance: PREGABALIN
     Indication: NEUROENDOCRINE TUMOUR
     Dosage: 300 MG, QD (2 CAPSULE EVERY 1 DAY)
     Route: 048
  2. THIAMINE HYDROCHLORIDE. [Concomitant]
     Active Substance: THIAMINE HYDROCHLORIDE
     Indication: PRODUCT USED FOR UNKNOWN INDICATION
     Route: 065
  3. AMITRIPTYLINE [Concomitant]
     Active Substance: AMITRIPTYLINE
     Indication: PRODUCT USED FOR UNKNOWN INDICATION
     Route: 065
  4. DILAUDID [Concomitant]
     Active Substance: HYDROMORPHONE HYDROCHLORIDE
     Indication: PRODUCT USED FOR UNKNOWN INDICATION
     Route: 065
  5. SANDOSTATIN [Suspect]
     Active Substance: OCTREOTIDE ACETATE
     Indication: NEUROENDOCRINE TUMOUR
     Route: 058
  6. VITAMIN B6 [Concomitant]
     Active Substance: PYRIDOXINE HYDROCHLORIDE
     Indication: PRODUCT USED FOR UNKNOWN INDICATION
     Route: 065
  7. APO TAMSULOSIN [Suspect]
     Active Substance: TAMSULOSIN HYDROCHLORIDE
     Indication: NEUROENDOCRINE TUMOUR
     Dosage: 0.8 MG, QD
     Route: 048
  8. SANDOSTATIN LAR DEPOT [Suspect]
     Active Substance: OCTREOTIDE ACETATE
     Indication: NEUROENDOCRINE TUMOUR
     Dosage: 20 MG, QW
     Route: 030
  9. PREDNISONE. [Concomitant]
     Active Substance: PREDNISONE
     Indication: PRODUCT USED FOR UNKNOWN INDICATION
     Route: 065
  10. VITAMIN B12 [Concomitant]
     Active Substance: CYANOCOBALAMIN
     Indication: PRODUCT USED FOR UNKNOWN INDICATION
     Route: 065
  11. LOPERAMIDE [Concomitant]
     Active Substance: LOPERAMIDE
     Indication: PRODUCT USED FOR UNKNOWN INDICATION
     Route: 065

REACTIONS (24)
  - Pain in extremity [Unknown]
  - Scratch [Unknown]
  - Back pain [Unknown]
  - Dysbacteriosis [Unknown]
  - Malaise [Unknown]
  - Peripheral swelling [Unknown]
  - Blood pressure systolic increased [Unknown]
  - Gait disturbance [Unknown]
  - Inflammation [Unknown]
  - Pain [Unknown]
  - Apathy [Unknown]
  - Fall [Unknown]
  - Lymphoedema [Unknown]
  - Skin fissures [Unknown]
  - Weight increased [Unknown]
  - Diarrhoea [Unknown]
  - Emotional distress [Unknown]
  - Oedema peripheral [Unknown]
  - Anxiety [Unknown]
  - Drug ineffective [Unknown]
  - Irritable bowel syndrome [Unknown]
  - Skin lesion [Unknown]
  - Erythema [Unknown]
  - Localised oedema [Unknown]
